FAERS Safety Report 21173113 (Version 3)
Quarter: 2022Q3

REPORT INFORMATION
  Report Type: Spontaneous
  Country: US (occurrence: US)
  Receive Date: 20220804
  Receipt Date: 20220920
  Transmission Date: 20221027
  Serious: No
  Sender: FDA-Public Use
  Company Number: US-KARYOPHARM-2022KPT000817

PATIENT

DRUGS (6)
  1. XPOVIO [Suspect]
     Active Substance: SELINEXOR
     Indication: Plasma cell leukaemia
     Dosage: 60 MG, WEEKLY
     Route: 048
     Dates: start: 202205
  2. DEXAMETHASONE [Concomitant]
     Active Substance: DEXAMETHASONE
  3. PHOSPHA 250 NEUTRAL [Concomitant]
     Active Substance: POTASSIUM PHOSPHATE, MONOBASIC\SODIUM PHOSPHATE, DIBASIC, ANHYDROUS\SODIUM PHOSPHATE, MONOBASIC, MON
  4. AYGESTIN [Concomitant]
     Active Substance: NORETHINDRONE ACETATE
  5. BACTRIM DS [Concomitant]
     Active Substance: SULFAMETHOXAZOLE\TRIMETHOPRIM
  6. VALTREX [Concomitant]
     Active Substance: VALACYCLOVIR HYDROCHLORIDE

REACTIONS (8)
  - Alopecia [Not Recovered/Not Resolved]
  - Taste disorder [Unknown]
  - Neuropathy peripheral [Unknown]
  - Gingival swelling [Unknown]
  - Photophobia [Unknown]
  - Pupillary reflex impaired [Unknown]
  - Decreased appetite [Unknown]
  - Off label use [Unknown]

NARRATIVE: CASE EVENT DATE: 20220401
